FAERS Safety Report 7093964-1 (Version None)
Quarter: 2010Q4

REPORT INFORMATION
  Report Type: 
  Country: None (occurrence: None)
  Receive Date: 20101110
  Receipt Date: 20101101
  Transmission Date: 20110411
  Serious: Yes (Hospitalization, Other)
  Sender: FDA-Public Use
  Company Number: US-ASTRAZENECA-2010SE51977

PATIENT
  Sex: Female

DRUGS (3)
  1. NEXIUM [Suspect]
     Route: 048
  2. PREVACID [Suspect]
     Route: 065
  3. PEPCID [Concomitant]
     Dosage: AT NIGHT

REACTIONS (4)
  - CEREBRAL PALSY [None]
  - GASTRIC OPERATION [None]
  - PRODUCTIVE COUGH [None]
  - RETCHING [None]
